FAERS Safety Report 5127326-0 (Version None)
Quarter: 2006Q4

REPORT INFORMATION
  Report Type: 
  Country: None (occurrence: None)
  Receive Date: 20061010
  Receipt Date: 20060921
  Transmission Date: 20070319
  Serious: Yes (Hospitalization)
  Sender: FDA-Public Use
  Company Number: 23100328

PATIENT
  Age: 63 Year
  Sex: Male
  Weight: 117 kg

DRUGS (22)
  1. ARGATROBAN [Suspect]
     Indication: CORONARY ANGIOPLASTY
     Dosage: 300 MCG/KG/MIN IV
     Route: 042
     Dates: start: 20060815, end: 20060815
  2. ARGATROBAN [Suspect]
     Indication: CORONARY ANGIOPLASTY
     Dosage: 20 MCG/KG/MIN IV
     Route: 042
     Dates: start: 20060815, end: 20060815
  3. ASPIRIN [Concomitant]
  4. ISOSORBIDE MONONITRATE [Concomitant]
  5. SIMVASTATIN [Concomitant]
  6. RAMIPRIL [Concomitant]
  7. BISOPROLOL FUMARATE [Concomitant]
  8. FORMOTEROL FUMARATE [Concomitant]
  9. TIOTROPIUM BROMIDE [Concomitant]
  10. HYZAAR [Concomitant]
  11. CLOPIDOGREL [Concomitant]
  12. LIDOCAINE [Concomitant]
  13. IMERON [Concomitant]
  14. DIAZEPAM [Concomitant]
  15. HEPARIN [Concomitant]
  16. MORPHINE [Concomitant]
  17. DIMETINDENE [Concomitant]
  18. PREDNISOLONE [Concomitant]
  19. LORAZEPAM [Concomitant]
  20. GLYCERYL TRINITRATE [Concomitant]
  21. SODIUM CHLORIDE [Concomitant]
  22. STEROFUNDIN [Concomitant]

REACTIONS (2)
  - HYPERSENSITIVITY [None]
  - PANIC ATTACK [None]
